FAERS Safety Report 10232877 (Version 1)
Quarter: 2014Q2

REPORT INFORMATION
  Report Type: Spontaneous
  Country: US (occurrence: None)
  Receive Date: 20140506
  Receipt Date: 20140506
  Transmission Date: 20141212
  Serious: Yes (Death, Hospitalization, Other)
  Sender: FDA-Public Use
  Company Number: 1257124

PATIENT
  Age: 52 Year
  Sex: Female
  Weight: 67.13 kg

DRUGS (5)
  1. AVASTIN (BEVACIZUMAB) [Suspect]
     Indication: NON-SMALL CELL LUNG CANCER METASTATIC
     Dosage: 15 MG/KG, 1 IN 3 WK
     Route: 042
     Dates: start: 20130411, end: 20130626
  2. CARBOPLATIN (CARBOPLATIN) [Concomitant]
  3. PACLITAXEL (PACLITAXEL) [Concomitant]
  4. ZOLEDRONIC ACID (ZOLEDRONIC ACID) [Concomitant]
  5. ONDANSETRON (ONDANSETRON) [Concomitant]

REACTIONS (3)
  - Haemoptysis [None]
  - Pneumonia necrotising [None]
  - Proteinuria [None]
